FAERS Safety Report 17824372 (Version 1)
Quarter: 2020Q2

REPORT INFORMATION
  Report Type: Spontaneous
  Country: US (occurrence: US)
  Receive Date: 20200526
  Receipt Date: 20200526
  Transmission Date: 20200714
  Serious: No
  Sender: FDA-Public Use
  Company Number: None

PATIENT
  Age: 61 Year
  Sex: Male

DRUGS (1)
  1. REPATHA [Suspect]
     Active Substance: EVOLOCUMAB

REACTIONS (3)
  - Injection site bruising [None]
  - Haemorrhage [None]
  - Injection site pain [None]

NARRATIVE: CASE EVENT DATE: 20200526
